FAERS Safety Report 20235801 (Version 1)
Quarter: 2021Q4

REPORT INFORMATION
  Report Type: Spontaneous
  Country: DE (occurrence: DE)
  Receive Date: 20211228
  Receipt Date: 20211228
  Transmission Date: 20220304
  Serious: Yes (Hospitalization)
  Sender: FDA-Public Use
  Company Number: DE-ADRED-05754-01

PATIENT
  Age: 24 Year
  Sex: Female

DRUGS (2)
  1. ETANERCEPT [Suspect]
     Active Substance: ETANERCEPT
     Indication: Product used for unknown indication
     Dosage: ONCE A WEEK, SOLUTION FOR INJECTION / INFUSION
     Route: 058
  2. ETANERCEPT [Suspect]
     Active Substance: ETANERCEPT
     Route: 058

REACTIONS (5)
  - Dysuria [Recovering/Resolving]
  - Flank pain [Recovering/Resolving]
  - Pyelonephritis [Recovering/Resolving]
  - Pyrexia [Recovering/Resolving]
  - Incorrect product dosage form administered [Unknown]
